FAERS Safety Report 8589600-5 (Version None)
Quarter: 2012Q3

REPORT INFORMATION
  Report Type: 
  Country: None (occurrence: None)
  Receive Date: 20120813
  Receipt Date: 20120730
  Transmission Date: 20120928
  Serious: Yes (Death, Life-Threatening)
  Sender: FDA-Public Use
  Company Number: JP-ROCHE-1077858

PATIENT
  Age: 50 Year
  Sex: Female
  Weight: 48 kg

DRUGS (13)
  1. OXYCONTIN [Concomitant]
     Dosage: DOSAGE IS UNCERTAIN.
     Route: 048
  2. DECADRON PHOSPHATE [Suspect]
     Indication: PRODUCT USED FOR UNKNOWN INDICATION
     Route: 041
     Dates: start: 20120601, end: 20120601
  3. ALDACTONE [Concomitant]
     Dosage: DOSAGE IS UNCERTAIN.
     Route: 048
  4. AVASTIN [Suspect]
     Indication: RECTAL CANCER METASTATIC
     Route: 041
     Dates: start: 20120601, end: 20120601
  5. BIO-THREE [Concomitant]
     Dosage: DOSAGE IS UNCERTAIN.
     Route: 048
  6. MUCOSTA [Concomitant]
     Dosage: DOSAGE IS UNCERTAIN.
     Route: 048
  7. LASIX [Concomitant]
     Dosage: DOSAGE IS UNCERTAIN.
     Route: 065
  8. OXALIPLATIN [Suspect]
     Indication: RECTAL CANCER METASTATIC
     Route: 041
     Dates: start: 20120601, end: 20120601
  9. XELODA [Suspect]
     Indication: RECTAL CANCER METASTATIC
     Route: 048
     Dates: start: 20120601, end: 20120606
  10. PROCHLORPERAZINE [Concomitant]
     Dosage: DOSAGE IS UNCERTAIN.
     Route: 065
  11. MAGMITT [Concomitant]
     Dosage: DOSAGE IS UNCERTAIN.
     Route: 048
  12. DECADRON PHOSPHATE [Suspect]
     Route: 048
     Dates: start: 20120601, end: 20120603
  13. LOXONIN [Concomitant]
     Dosage: DOSAGE IS UNCERTAIN.
     Route: 048

REACTIONS (2)
  - DISEASE PROGRESSION [None]
  - RENAL IMPAIRMENT [None]
